FAERS Safety Report 5552422-3 (Version None)
Quarter: 2007Q4

REPORT INFORMATION
  Report Type: 
  Country: None (occurrence: None)
  Receive Date: 20071130
  Receipt Date: 20070820
  Transmission Date: 20080405
  Serious: No
  Sender: FDA-Public Use
  Company Number: US200708004536

PATIENT
  Age: 62 Year
  Sex: Female

DRUGS (11)
  1. BYETTA [Suspect]
     Indication: TYPE 2 DIABETES MELLITUS
     Dosage: 5 UG, 2/D, SUBCUTANEOUS; 10 UG, 2/D, SUBCUTANEOUS
     Route: 058
     Dates: start: 20050101, end: 20050101
  2. BYETTA [Suspect]
     Indication: TYPE 2 DIABETES MELLITUS
     Dosage: 5 UG, 2/D, SUBCUTANEOUS; 10 UG, 2/D, SUBCUTANEOUS
     Route: 058
     Dates: start: 20050101, end: 20061101
  3. EXENATIDE 5MCG PEN, DISPOSABLE DEVICE [Concomitant]
  4. EXENATIDE 10MCG PEN, DISPOSABLE DEVICE [Concomitant]
  5. LANTUS [Concomitant]
  6. GLYBURIDE [Concomitant]
  7. HUMALOG [Concomitant]
  8. SYNTHROID [Concomitant]
  9. TOPROL-XL [Concomitant]
  10. CLONAZEPAM [Concomitant]
  11. METFORMIN HCL [Concomitant]

REACTIONS (3)
  - ABDOMINAL DISTENSION [None]
  - BLOOD CREATININE INCREASED [None]
  - BLOOD UREA INCREASED [None]
